FAERS Safety Report 6108159-5 (Version None)
Quarter: 2009Q1

REPORT INFORMATION
  Report Type: 
  Country: None (occurrence: None)
  Receive Date: 20090305
  Receipt Date: 20090305
  Transmission Date: 20090719
  Serious: No
  Sender: FDA-Public Use
  Company Number: None

PATIENT
  Sex: Female
  Weight: 72 kg

DRUGS (3)
  1. DOXORUBICIN HCL [Suspect]
     Dosage: 53 MG
  2. TAXOL [Suspect]
     Dosage: 222 MG
  3. NEULASTA [Suspect]
     Dosage: 6 MG

REACTIONS (3)
  - FATIGUE [None]
  - HAEMOGLOBIN DECREASED [None]
  - TINNITUS [None]
